FAERS Safety Report 21630340 (Version 5)
Quarter: 2022Q4

REPORT INFORMATION
  Report Type: Spontaneous
  Country: US (occurrence: US)
  Receive Date: 20221122
  Receipt Date: 20221216
  Transmission Date: 20230112
  Serious: Yes (Hospitalization)
  Sender: FDA-Public Use
  Company Number: US-BIOGEN-2021BI01028177

PATIENT
  Sex: Male

DRUGS (1)
  1. SPINRAZA [Suspect]
     Active Substance: NUSINERSEN
     Indication: Spinal muscular atrophy
     Route: 050

REACTIONS (8)
  - Inflammation [Unknown]
  - Noninfectious myelitis [Unknown]
  - Hemiparesis [Unknown]
  - Musculoskeletal pain [Not Recovered/Not Resolved]
  - Bone swelling [Not Recovered/Not Resolved]
  - Pain in extremity [Unknown]
  - Dysstasia [Unknown]
  - Back pain [Unknown]
